FAERS Safety Report 12580340 (Version 1)
Quarter: 2016Q3

REPORT INFORMATION
  Report Type: Spontaneous
  Country: US (occurrence: US)
  Receive Date: 20160721
  Receipt Date: 20160721
  Transmission Date: 20161109
  Serious: No
  Sender: FDA-Public Use
  Company Number: US-SEPTODONT-201503016

PATIENT
  Sex: Male

DRUGS (1)
  1. LIDOCAINE OINTMENT USP, 5% [Suspect]
     Active Substance: LIDOCAINE
     Indication: LOCAL ANAESTHESIA
     Route: 061
     Dates: start: 20150907

REACTIONS (4)
  - Product substitution issue [None]
  - Application site irritation [Unknown]
  - Reaction to drug excipients [None]
  - Off label use [Unknown]

NARRATIVE: CASE EVENT DATE: 20150907
